FAERS Safety Report 9727985 (Version 3)
Quarter: 2014Q1

REPORT INFORMATION
  Report Type: Spontaneous
  Country: DE (occurrence: DE)
  Receive Date: 20131204
  Receipt Date: 20140203
  Transmission Date: 20141002
  Serious: Yes (Life-Threatening, Hospitalization, Other)
  Sender: FDA-Public Use
  Company Number: DE-AMGEN-DEUSP2013084515

PATIENT
  Age: 46 Year
  Sex: Female

DRUGS (6)
  1. XGEVA [Suspect]
     Indication: METASTASES TO BONE
     Dosage: 120 MG, Q4WK
     Route: 058
     Dates: start: 20130917, end: 20130917
  2. VITAMIN D3 [Concomitant]
  3. DOCETAXEL [Concomitant]
  4. DOXORUBICIN [Concomitant]
  5. CYCLOPHOSPHAMID [Concomitant]
  6. CALCIUM [Concomitant]
     Dosage: 1000 MG, QD
     Route: 048

REACTIONS (9)
  - Encephalopathy [Unknown]
  - Somnolence [Unknown]
  - Syncope [Unknown]
  - Dizziness [Unknown]
  - Muscle spasms [Unknown]
  - Convulsion [Unknown]
  - Tetany [Unknown]
  - Electrocardiogram QT prolonged [Unknown]
  - Hypocalcaemia [Recovered/Resolved]
